FAERS Safety Report 9774478 (Version 1)
Quarter: 2013Q4

REPORT INFORMATION
  Report Type: Spontaneous
  Country: US (occurrence: None)
  Receive Date: 20131219
  Receipt Date: 20131219
  Transmission Date: 20140711
  Serious: Yes (Other)
  Sender: FDA-Public Use
  Company Number: None

PATIENT
  Age: 54 Year
  Sex: Male
  Weight: 117.1 kg

DRUGS (1)
  1. BRENTUXIMAB VEDONTIN [Suspect]
     Indication: GRAFT VERSUS HOST DISEASE
     Dosage: .3 MG/KG BRENTUXIMAB VED. EVERY 3 WEEKS
     Route: 042
     Dates: start: 20131030, end: 20131119

REACTIONS (2)
  - Neutrophil count decreased [None]
  - Graft loss [None]
